FAERS Safety Report 7322931-5 (Version None)
Quarter: 2011Q1

REPORT INFORMATION
  Report Type: 
  Country: None (occurrence: None)
  Receive Date: 20110301
  Receipt Date: 20110216
  Transmission Date: 20110831
  Serious: Yes (Other)
  Sender: FDA-Public Use
  Company Number: PHEH2006US13652

PATIENT
  Sex: Female

DRUGS (21)
  1. FEMARA [Concomitant]
  2. MILK OF MAGNESIA TAB [Concomitant]
  3. NORTRIPTYLINE [Concomitant]
  4. CIPROFLOXACIN [Concomitant]
  5. NAPROXEN [Concomitant]
  6. CHEMOTHERAPEUTICS NOS [Concomitant]
  7. ACTONEL [Concomitant]
  8. NEURONTIN [Concomitant]
  9. AREDIA [Suspect]
     Dosage: UNK
     Dates: start: 20031113, end: 20040108
  10. CLINDAMYCIN [Concomitant]
  11. GABAPENTIN [Concomitant]
  12. ZOMETA [Suspect]
     Dosage: 4 MG, UNK
     Route: 042
     Dates: start: 20040205
  13. PRINIVIL [Concomitant]
  14. GERITOL                                 /USA/ [Concomitant]
  15. CLEOCIN [Concomitant]
     Dosage: 300 MG, Q6H
     Route: 048
  16. DETROL [Concomitant]
  17. CELEBREX [Concomitant]
  18. CALCIUM [Concomitant]
  19. MULTI-VITAMINS [Concomitant]
  20. AMOXICILLIN [Concomitant]
  21. LUMIGAN [Concomitant]

REACTIONS (41)
  - MASTOIDITIS [None]
  - DECREASED INTEREST [None]
  - MASS [None]
  - MACULAR DEGENERATION [None]
  - EMOTIONAL DISTRESS [None]
  - FACIAL PAIN [None]
  - PRIMARY SEQUESTRUM [None]
  - OSTEOARTHRITIS [None]
  - OSTEONECROSIS OF JAW [None]
  - GINGIVITIS [None]
  - BONE DISORDER [None]
  - HYPOPHAGIA [None]
  - OSTEOMYELITIS [None]
  - ABSCESS JAW [None]
  - CELLULITIS [None]
  - STASIS DERMATITIS [None]
  - STOMATITIS NECROTISING [None]
  - OPEN WOUND [None]
  - DEFORMITY [None]
  - FISTULA [None]
  - GINGIVAL BLEEDING [None]
  - POOR PERSONAL HYGIENE [None]
  - OEDEMA PERIPHERAL [None]
  - TINEA PEDIS [None]
  - SPINAL COLUMN STENOSIS [None]
  - ORAL PAIN [None]
  - PERIPHERAL VASCULAR DISORDER [None]
  - DIZZINESS [None]
  - PANNICULITIS LOBULAR [None]
  - MICROANGIOPATHY [None]
  - FOOT DEFORMITY [None]
  - PAIN [None]
  - ONYCHOMYCOSIS [None]
  - BREATH ODOUR [None]
  - GENERAL PHYSICAL HEALTH DETERIORATION [None]
  - ANAEMIA [None]
  - IMPAIRED HEALING [None]
  - BONE PAIN [None]
  - ANXIETY [None]
  - BODY TINEA [None]
  - CATARACT [None]
